FAERS Safety Report 18200854 (Version 1)
Quarter: 2020Q3

REPORT INFORMATION
  Report Type: Other
  Country: FR (occurrence: FR)
  Receive Date: 20200827
  Receipt Date: 20200827
  Transmission Date: 20201103
  Serious: Yes (Hospitalization)
  Sender: FDA-Public Use
  Company Number: FR-CADILA HEALTHCARE LIMITED-FR-ZYDUS-054942

PATIENT

DRUGS (2)
  1. BIPROFENID [Suspect]
     Active Substance: KETOPROFEN
     Indication: PAIN IN EXTREMITY
     Dosage: 1 DOSAGE FORM, QD
     Route: 048
     Dates: start: 200706
  2. GABAPENTINE [Suspect]
     Active Substance: GABAPENTIN
     Indication: EPILEPSY
     Dosage: 1800 MILLIGRAM, QD
     Route: 048
     Dates: start: 200705, end: 20070902

REACTIONS (1)
  - Pancreatitis acute [Recovered/Resolved]

NARRATIVE: CASE EVENT DATE: 20070902
